FAERS Safety Report 4866511-X (Version None)
Quarter: 2005Q4

REPORT INFORMATION
  Report Type: 
  Country: None (occurrence: None)
  Receive Date: 20051227
  Receipt Date: 20050926
  Transmission Date: 20060501
  Serious: Yes (Hospitalization)
  Sender: FDA-Public Use
  Company Number: US-MERCK-0509USA04050

PATIENT
  Age: 41 Year
  Sex: Male
  Weight: 62 kg

DRUGS (10)
  1. VIOXX [Suspect]
     Indication: MUSCLE SPASMS
     Route: 048
     Dates: start: 20011109, end: 20020324
  2. VIOXX [Suspect]
     Route: 048
     Dates: start: 20011109, end: 20020324
  3. HYDROCODONE BITARTRATE [Concomitant]
     Route: 065
  4. LORTAB [Concomitant]
     Route: 065
  5. ZANAFLEX [Concomitant]
     Route: 065
  6. PRILOSEC [Concomitant]
     Route: 065
  7. ALEVE [Concomitant]
     Route: 065
  8. ENALAPRIL MALEATE [Concomitant]
     Route: 065
  9. LIPITOR [Concomitant]
     Route: 065
  10. FLOMAX (MORNIFLUMATE) [Concomitant]
     Route: 065

REACTIONS (8)
  - BLOOD CHOLESTEROL INCREASED [None]
  - CEREBROVASCULAR ACCIDENT [None]
  - CHEST DISCOMFORT [None]
  - CHEST PAIN [None]
  - DIABETES MELLITUS [None]
  - ILIAC ARTERY STENOSIS [None]
  - INTERMITTENT CLAUDICATION [None]
  - PERIPHERAL VASCULAR DISORDER [None]
